FAERS Safety Report 13666840 (Version 1)
Quarter: 2017Q2

REPORT INFORMATION
  Report Type: Spontaneous
  Country: US (occurrence: US)
  Receive Date: 20170619
  Receipt Date: 20170619
  Transmission Date: 20170830
  Serious: No
  Sender: FDA-Public Use
  Company Number: US-ROCHE-1315998

PATIENT
  Sex: Male

DRUGS (1)
  1. XELODA [Suspect]
     Active Substance: CAPECITABINE
     Indication: PRODUCT USED FOR UNKNOWN INDICATION
     Route: 065

REACTIONS (6)
  - Cognitive disorder [Unknown]
  - Burning sensation [Unknown]
  - Skin hypertrophy [Unknown]
  - Musculoskeletal stiffness [Unknown]
  - Erythema [Unknown]
  - Pain in extremity [Unknown]
